FAERS Safety Report 6790090-3 (Version None)
Quarter: 2010Q2

REPORT INFORMATION
  Report Type: 
  Country: None (occurrence: None)
  Receive Date: 20100624
  Receipt Date: 20100524
  Transmission Date: 20101027
  Serious: No
  Sender: FDA-Public Use
  Company Number: US-BAYER-201016009BCC

PATIENT
  Age: 59 Year
  Sex: Male
  Weight: 82 kg

DRUGS (6)
  1. ALEVE [Suspect]
     Indication: FIBROMYALGIA
     Dosage: TOTAL DAILY DOSE: 220 MG  UNIT DOSE: 220 MG
     Route: 048
     Dates: start: 20100522
  2. LYRICA [Concomitant]
  3. CELEBREX [Concomitant]
  4. OMEPRAZOLE [Concomitant]
  5. FENOFIBRATE [Concomitant]
  6. SIMVASTATIN [Concomitant]

REACTIONS (2)
  - FIBROMYALGIA [None]
  - FOREIGN BODY [None]
